FAERS Safety Report 22932520 (Version 6)
Quarter: 2023Q4

REPORT INFORMATION
  Report Type: Spontaneous
  Country: GB (occurrence: GB)
  Receive Date: 20230912
  Receipt Date: 20231215
  Transmission Date: 20240110
  Serious: Yes (Death, Hospitalization, Other)
  Sender: FDA-Public Use
  Company Number: None

PATIENT
  Age: 59 Year
  Sex: Male
  Weight: 62 kg

DRUGS (323)
  1. OLANZAPINE [Suspect]
     Active Substance: OLANZAPINE
     Indication: Schizophrenia
     Dosage: 15 MG, UNK
     Route: 065
     Dates: start: 20040217
  2. OLANZAPINE [Suspect]
     Active Substance: OLANZAPINE
     Dosage: 15 MG, UNK
     Route: 048
     Dates: start: 20060704
  3. OLANZAPINE [Suspect]
     Active Substance: OLANZAPINE
     Dosage: 2.5 MG, UNK
     Route: 048
     Dates: start: 20080823
  4. OLANZAPINE [Suspect]
     Active Substance: OLANZAPINE
     Dosage: 10 MG, UNK
     Route: 048
  5. OLANZAPINE [Suspect]
     Active Substance: OLANZAPINE
     Dosage: UNK, UNK
     Route: 065
  6. OLANZAPINE [Suspect]
     Active Substance: OLANZAPINE
     Dosage: 10 MG, UNK
     Route: 065
  7. OLANZAPINE [Suspect]
     Active Substance: OLANZAPINE
     Dosage: 10 MG, UNK
     Route: 065
  8. OLANZAPINE [Suspect]
     Active Substance: OLANZAPINE
     Dosage: UNK, UNK
     Route: 065
  9. OLANZAPINE [Suspect]
     Active Substance: OLANZAPINE
     Dosage: UNK,  UNK
     Route: 065
  10. OLANZAPINE [Suspect]
     Active Substance: OLANZAPINE
     Dosage: 10 MG, UNK
     Route: 065
  11. OLANZAPINE [Suspect]
     Active Substance: OLANZAPINE
     Dosage: UNK,  UNK
     Route: 065
  12. OLANZAPINE [Suspect]
     Active Substance: OLANZAPINE
     Dosage: 10 MG,  UNK
     Route: 065
  13. OLANZAPINE [Suspect]
     Active Substance: OLANZAPINE
     Dosage: UNK,  UNK
     Route: 065
  14. OLANZAPINE [Suspect]
     Active Substance: OLANZAPINE
     Dosage: 10 MG, UNK
     Route: 065
  15. OLANZAPINE [Suspect]
     Active Substance: OLANZAPINE
     Dosage: 1 MG, UNK
     Route: 048
  16. CLOZARIL [Suspect]
     Active Substance: CLOZAPINE
     Indication: Schizophrenia
     Dosage: 6000 MG,UNK
     Route: 048
     Dates: start: 20201207
  17. CLOZARIL [Suspect]
     Active Substance: CLOZAPINE
     Dosage: UNK, UNK (OFF LABEL USE)
     Route: 048
     Dates: start: 20200521, end: 2021
  18. CLOZARIL [Suspect]
     Active Substance: CLOZAPINE
     Dosage: UNK, UNK, (AMOFF LABEL USE)
     Dates: start: 2011
  19. CLOZARIL [Suspect]
     Active Substance: CLOZAPINE
     Dosage: 6000 MG,UNK
     Route: 048
     Dates: start: 20100823, end: 20100823
  20. CLOZARIL [Suspect]
     Active Substance: CLOZAPINE
     Dosage: 200 MG, 2 TIMES PER DAY (200 MILLIGRAM, BID OFF LABEL USE)
     Route: 048
     Dates: start: 20191209, end: 20191223
  21. CLOZARIL [Suspect]
     Active Substance: CLOZAPINE
     Dosage: 300 MG, ONCE PER DAY (PMOFF LABEL USE)
  22. CLOZARIL [Suspect]
     Active Substance: CLOZAPINE
     Dosage: 275 MG, ONCE PER DAY (275 MILLIGRAM, PM OFF LABEL USE)
     Route: 065
  23. CLOZARIL [Suspect]
     Active Substance: CLOZAPINE
     Dosage: 50 MG, ONCE PER DAY ((50 MILLIGRAM MIDDAY OFF LABEL USE))
  24. CLOZARIL [Suspect]
     Active Substance: CLOZAPINE
     Dosage: 100 MG, ONCE PER DAY (100 MILLIGRAM, AM OFF LABEL USE)
     Route: 065
  25. CLOZARIL [Suspect]
     Active Substance: CLOZAPINE
     Dosage: 200 MG, 2 TIMES PER DAY (OFF LABEL USE)
     Route: 065
     Dates: start: 20191209
  26. CLOZARIL [Suspect]
     Active Substance: CLOZAPINE
     Dosage: 6000 MG, UNK,
     Route: 048
     Dates: start: 20191223, end: 20191223
  27. CLOZARIL [Suspect]
     Active Substance: CLOZAPINE
     Dosage: 200 MG, 2 TIMES PER DAY (200 MILLIGRAM, BIDOFF LABEL USE)
     Route: 048
  28. CLOZARIL [Suspect]
     Active Substance: CLOZAPINE
     Dosage: 1 DOSAGE FORM, ONCE PER DAY
     Dates: start: 2011
  29. CLOZARIL [Suspect]
     Active Substance: CLOZAPINE
     Dosage: 245 MG, ONCE PER DAY
     Route: 048
     Dates: start: 2011
  30. CLOZARIL [Suspect]
     Active Substance: CLOZAPINE
     Dosage: 400 MG, ONCE PER DAY
     Route: 048
     Dates: start: 20191223, end: 20191223
  31. CLOZARIL [Suspect]
     Active Substance: CLOZAPINE
     Dosage: 275 MG, ONCE PER DAY
     Route: 048
     Dates: start: 20200521, end: 2020
  32. CLOZARIL [Suspect]
     Active Substance: CLOZAPINE
     Dosage: 245 MG, UNK
     Route: 048
     Dates: start: 20191209, end: 20191223
  33. CLOZARIL [Suspect]
     Active Substance: CLOZAPINE
     Dosage: 800 MG, ONCE PER DAY
     Route: 048
     Dates: start: 20201207
  34. CLOZARIL [Suspect]
     Active Substance: CLOZAPINE
     Dosage: 200 MG, 2 TIMES PER DAY
     Route: 048
  35. CLOZARIL [Suspect]
     Active Substance: CLOZAPINE
     Dosage: 200 MG, 2 TIMES PER DAY
     Route: 065
  36. CLOZARIL [Suspect]
     Active Substance: CLOZAPINE
     Dosage: 1 DOSAGE FORM,  UNK (EACH MORNING)
     Route: 048
     Dates: start: 2011
  37. CLOZARIL [Suspect]
     Active Substance: CLOZAPINE
     Dosage: 50 MG, ONCE PER DAY ((50 MILLIGRAM MIDDAY OFF LABEL USE))
     Route: 065
  38. CLOZARIL [Suspect]
     Active Substance: CLOZAPINE
     Dosage: 50 MG, ONCE PER DAY (MIDDAY)
     Route: 065
     Dates: start: 20191209, end: 20191223
  39. CLOZARIL [Suspect]
     Active Substance: CLOZAPINE
     Dosage: 275 MG, ONCE PER DAY
     Route: 065
  40. CLOZARIL [Suspect]
     Active Substance: CLOZAPINE
     Dosage: 50 MG, ONCE PER DAY (MIDDAY)
     Route: 065
  41. CLOZARIL [Suspect]
     Active Substance: CLOZAPINE
     Dosage: 600 MG, ONCE PER DAY, (QD AM (1 ONCE A DAY))
     Dates: start: 2011
  42. CLOZARIL [Suspect]
     Active Substance: CLOZAPINE
     Dosage: 275 MG, ONCE PER DAY
     Route: 048
     Dates: start: 20200521, end: 2020
  43. CLOZARIL [Suspect]
     Active Substance: CLOZAPINE
     Dosage: 50 MG, ONCE PER DAY (MIDDAY)
     Route: 065
  44. CLOZARIL [Suspect]
     Active Substance: CLOZAPINE
     Dosage: UNK,  UNK, DF
     Dates: start: 2011
  45. CLOZARIL [Suspect]
     Active Substance: CLOZAPINE
     Dosage: 275 MG, ONCE PER DAY
     Route: 065
  46. CLOZARIL [Suspect]
     Active Substance: CLOZAPINE
     Dosage: 200 MG, 2 TIMES PER DAY
     Route: 065
  47. CLOZARIL [Suspect]
     Active Substance: CLOZAPINE
     Dosage: 245 MG, UNK
     Route: 048
     Dates: start: 2011
  48. CLOZARIL [Suspect]
     Active Substance: CLOZAPINE
     Dosage: 400 MG, ONCE PER DAY
     Route: 048
     Dates: start: 20191209, end: 20191223
  49. CLOZARIL [Suspect]
     Active Substance: CLOZAPINE
     Dosage: 400 MG, 2 TIMES PER DAY
     Route: 065
  50. CLOZARIL [Suspect]
     Active Substance: CLOZAPINE
     Dosage: 400 MG, ONCE PER DAY (200 MG BID)
     Route: 048
     Dates: start: 20201207
  51. CLOZARIL [Suspect]
     Active Substance: CLOZAPINE
     Dosage: 100 MG, ONCE PER DAY
     Route: 065
  52. CLOZARIL [Suspect]
     Active Substance: CLOZAPINE
     Dosage: 300 MG, ONCE PER DAY(1X/DAY (PM))
     Route: 048
     Dates: start: 20100823
  53. CLOZARIL [Suspect]
     Active Substance: CLOZAPINE
     Dosage: 100 MG, ONCE PER DAY (EACH MORNING)
     Route: 048
  54. CLOZARIL [Suspect]
     Active Substance: CLOZAPINE
     Dosage: UNK,  UNK
     Dates: start: 20191209, end: 20191223
  55. CLOZARIL [Suspect]
     Active Substance: CLOZAPINE
     Dosage: 300 MG, ONCE PER DAY
     Route: 065
  56. CLOZARIL [Suspect]
     Active Substance: CLOZAPINE
     Dosage: 275 MG, ONCE PER DAY
     Route: 048
  57. CLOZARIL [Suspect]
     Active Substance: CLOZAPINE
     Dosage: 400 MG, ONCE PER DAY (200 MG BID)
     Route: 048
  58. CLOZARIL [Suspect]
     Active Substance: CLOZAPINE
     Dosage: 50 MG, ONCE PER DAY
     Route: 048
  59. CLOZARIL [Suspect]
     Active Substance: CLOZAPINE
     Dosage: 100 MG, ONCE PER DAY
     Route: 065
  60. CLOZARIL [Suspect]
     Active Substance: CLOZAPINE
     Dosage: 300 MG, ONCE PER DAY
     Route: 065
  61. CLOZARIL [Suspect]
     Active Substance: CLOZAPINE
     Dosage: 275 MG, ONCE PER DAY
     Route: 065
  62. CLOZARIL [Suspect]
     Active Substance: CLOZAPINE
     Dosage: UNK,  UNK
     Route: 048
     Dates: start: 20191223, end: 20191223
  63. CLOZARIL [Suspect]
     Active Substance: CLOZAPINE
     Dosage: 245 MG, UNK
     Route: 065
     Dates: start: 20191207
  64. CLOZARIL [Suspect]
     Active Substance: CLOZAPINE
     Dosage: UNK,  UNK
     Route: 048
     Dates: start: 20200521, end: 2020
  65. CLOZARIL [Suspect]
     Active Substance: CLOZAPINE
     Dosage: UNK,  UNK (AM (1 ONCE A DAY (AM))
     Dates: start: 2011
  66. ZUCLOPENTHIXOL HYDROCHLORIDE [Suspect]
     Active Substance: ZUCLOPENTHIXOL HYDROCHLORIDE
     Indication: Product used for unknown indication
     Dosage: 400 MG,  PER WEEK
     Route: 030
     Dates: start: 20030204, end: 20040217
  67. ZUCLOPENTHIXOL HYDROCHLORIDE [Suspect]
     Active Substance: ZUCLOPENTHIXOL HYDROCHLORIDE
     Dosage: 400 MG, PER WEEK
     Route: 030
     Dates: start: 20040601, end: 20041018
  68. ZUCLOPENTHIXOL HYDROCHLORIDE [Suspect]
     Active Substance: ZUCLOPENTHIXOL HYDROCHLORIDE
     Dosage: 400 MG, UNK (400 MILLIGRAM, BIWEEKLY) ; CYCLICAL
     Route: 030
     Dates: start: 20040601, end: 20041018
  69. ZUCLOPENTHIXOL HYDROCHLORIDE [Suspect]
     Active Substance: ZUCLOPENTHIXOL HYDROCHLORIDE
     Dosage: 300 MG, PER WEEK
     Route: 030
     Dates: start: 20091009
  70. ZUCLOPENTHIXOL HYDROCHLORIDE [Suspect]
     Active Substance: ZUCLOPENTHIXOL HYDROCHLORIDE
     Dosage: UNK, UNK
     Route: 030
  71. ZUCLOPENTHIXOL HYDROCHLORIDE [Suspect]
     Active Substance: ZUCLOPENTHIXOL HYDROCHLORIDE
     Dosage: 400 MG, UNK, OTHER (400 MILLIGRAM, BIWEEKLY)
     Route: 030
     Dates: start: 20041018, end: 20041018
  72. ZUCLOPENTHIXOL HYDROCHLORIDE [Suspect]
     Active Substance: ZUCLOPENTHIXOL HYDROCHLORIDE
     Dosage: 300 MG, PER WEEK
     Route: 030
     Dates: start: 20091018
  73. ZUCLOPENTHIXOL HYDROCHLORIDE [Suspect]
     Active Substance: ZUCLOPENTHIXOL HYDROCHLORIDE
     Dosage: 400 MG, UNK (400 MILLIGRAM, BIWEEKLY) ; CYCLICAL
     Route: 030
     Dates: start: 20030204, end: 20040217
  74. ZUCLOPENTHIXOL HYDROCHLORIDE [Suspect]
     Active Substance: ZUCLOPENTHIXOL HYDROCHLORIDE
     Dosage: 300 MG, QD (300 MILLIGRAM I.M WEEKLY)
     Route: 030
     Dates: start: 20091009
  75. ZUCLOPENTHIXOL HYDROCHLORIDE [Suspect]
     Active Substance: ZUCLOPENTHIXOL HYDROCHLORIDE
     Dosage: 400 MG, BIWEEKLY
     Route: 030
     Dates: start: 20040217, end: 20040601
  76. ZUCLOPENTHIXOL HYDROCHLORIDE [Suspect]
     Active Substance: ZUCLOPENTHIXOL HYDROCHLORIDE
     Dosage: UNK,  UNK
     Route: 030
  77. ZUCLOPENTHIXOL HYDROCHLORIDE [Suspect]
     Active Substance: ZUCLOPENTHIXOL HYDROCHLORIDE
     Dosage: 400 MG, PER WEEK, CYCLE
     Route: 030
  78. ZUCLOPENTHIXOL HYDROCHLORIDE [Suspect]
     Active Substance: ZUCLOPENTHIXOL HYDROCHLORIDE
     Dosage: 400 MG,UNK, CYCLE
     Dates: start: 20091018
  79. ZUCLOPENTHIXOL HYDROCHLORIDE [Suspect]
     Active Substance: ZUCLOPENTHIXOL HYDROCHLORIDE
     Dosage: 800 MG, PER WEEK (400 MG, BIW), CYCLIC
     Route: 030
     Dates: start: 20030204, end: 20040217
  80. ZUCLOPENTHIXOL HYDROCHLORIDE [Suspect]
     Active Substance: ZUCLOPENTHIXOL HYDROCHLORIDE
     Dosage: 300 MG, ONCE PER DAY
     Route: 030
     Dates: start: 20091009
  81. ZUCLOPENTHIXOL HYDROCHLORIDE [Suspect]
     Active Substance: ZUCLOPENTHIXOL HYDROCHLORIDE
     Dosage: 400 MG, PER WEEK
     Route: 030
     Dates: start: 20040217, end: 20040601
  82. ZUCLOPENTHIXOL HYDROCHLORIDE [Suspect]
     Active Substance: ZUCLOPENTHIXOL HYDROCHLORIDE
     Dosage: 800 MG, PER WEEK (400MG ,BIW)
     Route: 030
     Dates: start: 20040601, end: 20041018
  83. ZUCLOPENTHIXOL HYDROCHLORIDE [Suspect]
     Active Substance: ZUCLOPENTHIXOL HYDROCHLORIDE
     Dosage: 400 MG,UNK
     Route: 030
     Dates: end: 20041018
  84. ZUCLOPENTHIXOL HYDROCHLORIDE [Suspect]
     Active Substance: ZUCLOPENTHIXOL HYDROCHLORIDE
     Dosage: 800 MG, PER WEEK, (400 MG, BIW)
     Route: 030
     Dates: start: 20041018, end: 20041018
  85. ZUCLOPENTHIXOL HYDROCHLORIDE [Suspect]
     Active Substance: ZUCLOPENTHIXOL HYDROCHLORIDE
     Dosage: 400 MG, EVERY CYCLE (400 MILLIGRAM, WEEKLY/17-FEB-2004 )
     Route: 030
     Dates: start: 20040217, end: 20040601
  86. ZUCLOPENTHIXOL HYDROCHLORIDE [Suspect]
     Active Substance: ZUCLOPENTHIXOL HYDROCHLORIDE
     Dosage: 300 MG, PER WEEK (300 MILLIGRAM, QD (300 MILLIGRAM I.M WEEKLY)09-OCT-2009 )
     Route: 030
  87. ZUCLOPENTHIXOL HYDROCHLORIDE [Suspect]
     Active Substance: ZUCLOPENTHIXOL HYDROCHLORIDE
     Dosage: 400 MG,  PER WEEK (400 MG, CYCLIC (400 MG, BIWEEKLY); CYCLICAL )
     Route: 030
     Dates: start: 20030204, end: 20040217
  88. ZUCLOPENTHIXOL HYDROCHLORIDE [Suspect]
     Active Substance: ZUCLOPENTHIXOL HYDROCHLORIDE
     Dosage: 400 MG,  PER WEEK
     Route: 030
     Dates: start: 20040217, end: 20040601
  89. ZUCLOPENTHIXOL HYDROCHLORIDE [Suspect]
     Active Substance: ZUCLOPENTHIXOL HYDROCHLORIDE
     Dosage: 800 MG, PER WEEK, (800 MG, QW, (04 FEB 2003))
     Route: 030
     Dates: start: 20030204, end: 20040217
  90. ZUCLOPENTHIXOL HYDROCHLORIDE [Suspect]
     Active Substance: ZUCLOPENTHIXOL HYDROCHLORIDE
     Dosage: 400 MG, CYCLE
     Route: 030
     Dates: end: 20091018
  91. ZUCLOPENTHIXOL HYDROCHLORIDE [Suspect]
     Active Substance: ZUCLOPENTHIXOL HYDROCHLORIDE
     Dosage: 400 MG, CYCLIC (400 MG, BIWEEKLY) )
     Route: 030
     Dates: start: 20040601, end: 20041018
  92. ZUCLOPENTHIXOL HYDROCHLORIDE [Suspect]
     Active Substance: ZUCLOPENTHIXOL HYDROCHLORIDE
     Dosage: UNK,UNK
     Route: 030
  93. ZUCLOPENTHIXOL HYDROCHLORIDE [Suspect]
     Active Substance: ZUCLOPENTHIXOL HYDROCHLORIDE
     Dosage: 400 UNK
     Route: 065
     Dates: start: 20040601
  94. ARIPIPRAZOLE [Suspect]
     Active Substance: ARIPIPRAZOLE
     Indication: Schizophrenia
     Dosage: 5 MG, UNK
     Route: 048
  95. ARIPIPRAZOLE [Suspect]
     Active Substance: ARIPIPRAZOLE
     Dosage: UNK, UNK
  96. ARIPIPRAZOLE [Suspect]
     Active Substance: ARIPIPRAZOLE
     Dosage: 5 MG, UNK
     Route: 048
  97. ARIPIPRAZOLE [Suspect]
     Active Substance: ARIPIPRAZOLE
     Dosage: 5 MG, UNK
     Route: 048
  98. ARIPIPRAZOLE [Suspect]
     Active Substance: ARIPIPRAZOLE
     Dosage: 5 MG,UNK
     Route: 048
  99. CHLORPROMAZINE [Suspect]
     Active Substance: CHLORPROMAZINE
     Indication: Schizophrenia
     Dosage: 75 MG, UNK
     Route: 048
  100. CHLORPROMAZINE [Suspect]
     Active Substance: CHLORPROMAZINE
     Dosage: 75 MG, UNK
     Route: 048
  101. CHLORPROMAZINE [Suspect]
     Active Substance: CHLORPROMAZINE
     Dosage: 75 MG, UNK
     Route: 048
  102. CHLORPROMAZINE [Suspect]
     Active Substance: CHLORPROMAZINE
     Dosage: 75 MG, UNK
     Route: 048
  103. CHLORPROMAZINE [Suspect]
     Active Substance: CHLORPROMAZINE
     Dosage: 75 MG, UNK
     Route: 048
  104. CHLORPROMAZINE [Suspect]
     Active Substance: CHLORPROMAZINE
     Dosage: 75 MG, UNK
     Route: 065
  105. CHLORPROMAZINE [Suspect]
     Active Substance: CHLORPROMAZINE
     Dosage: UNK,  UNK
  106. CHLORPROMAZINE [Suspect]
     Active Substance: CHLORPROMAZINE
     Dosage: UNK,  UNK
  107. CHLORPROMAZINE [Suspect]
     Active Substance: CHLORPROMAZINE
     Dosage: UNK,  UNK
  108. CHLORPROMAZINE [Suspect]
     Active Substance: CHLORPROMAZINE
     Dosage: UNK,  UNK
  109. CHLORPROMAZINE [Suspect]
     Active Substance: CHLORPROMAZINE
     Dosage: UNK,  UNK
  110. CHLORPROMAZINE [Suspect]
     Active Substance: CHLORPROMAZINE
     Dosage: UNK,  UNK
  111. HALOPERIDOL [Suspect]
     Active Substance: HALOPERIDOL
     Indication: Schizophrenia
     Dosage: 5 MG, 2 TIMES PER DAY (5 MILLIGRAM, BID)
     Route: 048
  112. HALOPERIDOL [Suspect]
     Active Substance: HALOPERIDOL
     Indication: Schizophrenia
     Dosage: 10 MG, 2 TIMES PER DAY
     Route: 065
  113. HALOPERIDOL [Suspect]
     Active Substance: HALOPERIDOL
     Dosage: 5 MG, 2 TIMES PER DAY (5 MILLIGRAM, BID)
     Route: 065
  114. HALOPERIDOL [Suspect]
     Active Substance: HALOPERIDOL
     Dosage: 20 MG, ONCE PER DAY
     Route: 065
  115. HALOPERIDOL [Suspect]
     Active Substance: HALOPERIDOL
     Dosage: 10 MG, 2 TIMES PER DAY
     Route: 048
  116. HALOPERIDOL [Suspect]
     Active Substance: HALOPERIDOL
     Dosage: 20 MG, ONCE PER DAY (10 MILLIGRAM, BID)
     Route: 065
  117. HALOPERIDOL [Suspect]
     Active Substance: HALOPERIDOL
     Dosage: 20 MG, ONCE PER DAY
     Route: 048
  118. HALOPERIDOL [Suspect]
     Active Substance: HALOPERIDOL
     Dosage: 4 MG, ONCE PER DAY
     Route: 048
  119. HALOPERIDOL [Suspect]
     Active Substance: HALOPERIDOL
     Dosage: 5 MG, 2 TIMES PER DAY
     Route: 048
  120. HALOPERIDOL [Suspect]
     Active Substance: HALOPERIDOL
     Dosage: 20 MG, ONCE PER DAY
     Route: 048
  121. HALOPERIDOL [Suspect]
     Active Substance: HALOPERIDOL
     Dosage: 5 MG, 2 TIMES PER DAY
     Route: 065
  122. HALOPERIDOL [Suspect]
     Active Substance: HALOPERIDOL
     Dosage: 10 MG, ONCE PER DAY, (5 MILLIGRAM, BID)
     Route: 065
  123. HALOPERIDOL [Suspect]
     Active Substance: HALOPERIDOL
     Dosage: 10 MG, ONCE PER DAY
     Route: 048
  124. HALOPERIDOL [Suspect]
     Active Substance: HALOPERIDOL
     Dosage: 10 MG, ONCE PER DAY
     Route: 048
  125. HALOPERIDOL [Suspect]
     Active Substance: HALOPERIDOL
     Dosage: 10 MG, ONCE PER DAY
     Route: 048
  126. HALOPERIDOL [Suspect]
     Active Substance: HALOPERIDOL
     Dosage: 20 MG, 2 TIMES PER DAY (10 MG, 2X/DAY)
     Route: 048
  127. HALOPERIDOL [Suspect]
     Active Substance: HALOPERIDOL
     Dosage: 40 MG, ONCE PER DAY, (TWO TIMES A DAY (10 MG, 2X/DAY))
  128. HALOPERIDOL [Suspect]
     Active Substance: HALOPERIDOL
     Dosage: 5 MG, ONCE PER DAY
     Route: 048
  129. HALOPERIDOL [Suspect]
     Active Substance: HALOPERIDOL
     Dosage: UNK,  UNK
  130. HALOPERIDOL [Suspect]
     Active Substance: HALOPERIDOL
     Dosage: 20 MG,  UNK
     Route: 048
  131. HALOPERIDOL [Suspect]
     Active Substance: HALOPERIDOL
     Dosage: 40 MG, ONCE PER DAY
  132. HALOPERIDOL [Suspect]
     Active Substance: HALOPERIDOL
     Dosage: 80 MG, ONCE PER DAY
  133. RISPERIDONE [Suspect]
     Active Substance: RISPERIDONE
     Indication: Product used for unknown indication
     Dosage: 3 MG, ONCE PER DAY
     Route: 048
  134. RISPERIDONE [Suspect]
     Active Substance: RISPERIDONE
     Indication: Schizophrenia
     Dosage: 1 MG, UNK (1 MILLIGRAM, DAILY )
     Route: 065
  135. RISPERIDONE [Suspect]
     Active Substance: RISPERIDONE
     Dosage: 1 G, ONCE PER DAY
     Route: 048
  136. RISPERIDONE [Suspect]
     Active Substance: RISPERIDONE
     Dosage: 2 MG, ONCE PER DAY
     Route: 065
  137. RISPERIDONE [Suspect]
     Active Substance: RISPERIDONE
     Dosage: 1 MG, ONCE PER DAY
     Route: 065
  138. RISPERIDONE [Suspect]
     Active Substance: RISPERIDONE
     Dosage: 6 MG, ONCE PER DAY (3 MG, 2X/DAY)
     Route: 065
  139. RISPERIDONE [Suspect]
     Active Substance: RISPERIDONE
     Dosage: 4 MG, ONCE PER DAY (2 MG, 2X/DAY)
     Route: 065
  140. RISPERIDONE [Suspect]
     Active Substance: RISPERIDONE
     Dosage: UNK,  UNK
  141. RISPERIDONE [Suspect]
     Active Substance: RISPERIDONE
     Dosage: 1 MG, ONCE PER DAY
     Route: 048
  142. RISPERIDONE [Suspect]
     Active Substance: RISPERIDONE
     Dosage: 3 MG, 2 TIMES PER DAY
     Route: 065
  143. RISPERIDONE [Suspect]
     Active Substance: RISPERIDONE
     Dosage: 2 MG, 2 TIMES PER DAY
     Route: 065
  144. RISPERIDONE [Suspect]
     Active Substance: RISPERIDONE
     Dosage: 4 MG, ONCE PER DAY
     Route: 065
  145. RISPERIDONE [Suspect]
     Active Substance: RISPERIDONE
     Dosage: 6 MG, ONCE PER DAY
     Route: 048
  146. RISPERIDONE [Suspect]
     Active Substance: RISPERIDONE
     Dosage: 4 MG, ONCE PER DAY
     Route: 048
  147. RISPERIDONE [Suspect]
     Active Substance: RISPERIDONE
     Dosage: 2 MG, UNK
     Route: 065
  148. RISPERIDONE [Suspect]
     Active Substance: RISPERIDONE
     Dosage: 3 MG, 2 TIMES PER DAY
     Route: 048
  149. RISPERIDONE [Suspect]
     Active Substance: RISPERIDONE
     Dosage: 12 MG, ONCE PER DAY
  150. LITHIUM [Suspect]
     Active Substance: LITHIUM
     Indication: Product used for unknown indication
     Dosage: 1 MG, UNK
     Route: 048
  151. LITHIUM [Suspect]
     Active Substance: LITHIUM
     Dosage: UNK,  UNK
  152. LITHIUM [Suspect]
     Active Substance: LITHIUM
     Dosage: 2 GRAM, UNK
     Route: 048
  153. LITHIUM [Suspect]
     Active Substance: LITHIUM
     Dosage: 2 GRAM, UNK
     Route: 065
  154. LITHIUM [Suspect]
     Active Substance: LITHIUM
     Dosage: 1 GRAM, UNK
     Route: 048
  155. LITHIUM [Suspect]
     Active Substance: LITHIUM
     Dosage: 1 GRAM, UNK
     Route: 065
  156. LITHIUM [Suspect]
     Active Substance: LITHIUM
     Dosage: 1 GRAM, UNK
     Route: 065
  157. LITHIUM [Suspect]
     Active Substance: LITHIUM
     Dosage: 2 GRAM, UNK
     Route: 065
  158. LITHIUM [Suspect]
     Active Substance: LITHIUM
     Dosage: 1 MG,  UNK
     Route: 048
  159. LITHIUM [Suspect]
     Active Substance: LITHIUM
     Dosage: 1 GRAM, UNK
     Route: 065
  160. LITHIUM [Suspect]
     Active Substance: LITHIUM
     Dosage: 1 GRAM, UNK
     Route: 065
  161. LITHIUM [Suspect]
     Active Substance: LITHIUM
     Dosage: 6 MG, ONCE PER DAY
     Route: 065
  162. LITHIUM [Suspect]
     Active Substance: LITHIUM
     Dosage: 1 MG,  UNK
     Route: 048
  163. LITHIUM [Suspect]
     Active Substance: LITHIUM
     Dosage: 1 GRAM, UNK
     Route: 065
  164. LITHIUM [Suspect]
     Active Substance: LITHIUM
     Dosage: 1 GRAM, UNK
     Route: 065
  165. LITHIUM [Suspect]
     Active Substance: LITHIUM
     Dosage: 1 GRAM, UNK
     Route: 065
  166. LITHIUM [Suspect]
     Active Substance: LITHIUM
     Dosage: 2 GRAM, UNK
     Route: 065
  167. LITHIUM [Suspect]
     Active Substance: LITHIUM
     Dosage: 2 GRAM, UNK
     Route: 065
  168. LITHIUM [Suspect]
     Active Substance: LITHIUM
     Dosage: 2 GRAM, UNK
     Route: 065
  169. LITHIUM [Suspect]
     Active Substance: LITHIUM
     Dosage: UNK,  UNK
  170. LITHIUM [Suspect]
     Active Substance: LITHIUM
     Dosage: UNK,  UNK
  171. LITHIUM [Suspect]
     Active Substance: LITHIUM
     Dosage: 2 GRAM, UNK
     Route: 065
  172. LORAZEPAM [Suspect]
     Active Substance: LORAZEPAM
     Indication: Schizophrenia
     Dosage: 1 MG,  UNK
     Route: 048
  173. LORAZEPAM [Suspect]
     Active Substance: LORAZEPAM
     Dosage: 1 MG,  UNK
     Route: 048
  174. LORAZEPAM [Suspect]
     Active Substance: LORAZEPAM
     Dosage: 1 MG,  UNK
     Route: 048
  175. LORAZEPAM [Suspect]
     Active Substance: LORAZEPAM
     Dosage: 1 MG,  UNK
     Route: 048
  176. LORAZEPAM [Suspect]
     Active Substance: LORAZEPAM
     Dosage: 1 MG,  UNK
     Route: 048
  177. LORAZEPAM [Suspect]
     Active Substance: LORAZEPAM
     Dosage: 1 MG,  UNK
     Route: 048
  178. LORAZEPAM [Suspect]
     Active Substance: LORAZEPAM
     Dosage: UNK,UNK
  179. LORAZEPAM [Suspect]
     Active Substance: LORAZEPAM
     Dosage: 1 MG,  UNK
     Route: 048
  180. LORAZEPAM [Suspect]
     Active Substance: LORAZEPAM
     Dosage: 1 MG,  UNK
     Route: 048
  181. LORAZEPAM [Suspect]
     Active Substance: LORAZEPAM
     Dosage: 1 MG,  UNK
     Route: 048
  182. LORAZEPAM [Suspect]
     Active Substance: LORAZEPAM
     Dosage: 1 MG,  UNK
     Route: 048
  183. RISPERDAL [Suspect]
     Active Substance: RISPERIDONE
     Indication: Product used for unknown indication
     Dosage: 1 G, ONCE PER DAY
     Route: 048
  184. RISPERDAL [Suspect]
     Active Substance: RISPERIDONE
     Indication: Schizophrenia
     Dosage: 4 G, ONCE PER DAY
     Route: 065
  185. RISPERDAL [Suspect]
     Active Substance: RISPERIDONE
     Dosage: 4 G, ONCE PER DAY
     Route: 065
  186. RISPERDAL [Suspect]
     Active Substance: RISPERIDONE
     Dosage: 6 G, ONCE PER DAY
     Route: 065
  187. RISPERDAL [Suspect]
     Active Substance: RISPERIDONE
     Dosage: 6 G, ONCE PER DAY
     Route: 048
  188. RISPERDAL [Suspect]
     Active Substance: RISPERIDONE
     Dosage: 1 MG, ONCE PER DAY
     Route: 048
  189. RISPERDAL [Suspect]
     Active Substance: RISPERIDONE
     Dosage: 6 MG, ONCE PER DAY (3 MG, 2X/DAY)
     Route: 065
  190. RISPERDAL [Suspect]
     Active Substance: RISPERIDONE
     Dosage: 6 MG, ONCE PER DAY
     Route: 065
  191. RISPERDAL [Suspect]
     Active Substance: RISPERIDONE
     Dosage: 4 MG, 2 TIMES PER DAY, (ONCE A DAY (4 MG, QD))
  192. RISPERDAL [Suspect]
     Active Substance: RISPERIDONE
     Dosage: 4 MG, ONCE PER DAY
     Route: 048
  193. RISPERDAL [Suspect]
     Active Substance: RISPERIDONE
     Dosage: 1 G, ONCE PER DAY
     Route: 065
  194. RISPERDAL [Suspect]
     Active Substance: RISPERIDONE
     Dosage: 4 MG, ONCE PER DAY
     Route: 065
  195. RISPERDAL [Suspect]
     Active Substance: RISPERIDONE
     Dosage: 1 G, ONCE PER DAY
     Route: 065
  196. RISPERDAL [Suspect]
     Active Substance: RISPERIDONE
     Dosage: 4 MG, ONCE PER DAY
     Route: 065
  197. RISPERDAL [Suspect]
     Active Substance: RISPERIDONE
     Dosage: 4 G, ONCE PER DAY
     Route: 065
  198. RISPERDAL [Suspect]
     Active Substance: RISPERIDONE
     Dosage: 1 G, ONCE PER DAY
     Route: 065
  199. RISPERDAL [Suspect]
     Active Substance: RISPERIDONE
     Dosage: 1 MG, ONCE PER DAY
     Route: 065
  200. RISPERDAL [Suspect]
     Active Substance: RISPERIDONE
     Dosage: 6 MG, ONCE PER DAY
     Route: 048
  201. RISPERDAL [Suspect]
     Active Substance: RISPERIDONE
     Dosage: 1 G, ONCE PER DAY
     Route: 065
  202. RISPERDAL [Suspect]
     Active Substance: RISPERIDONE
     Dosage: 6 MG, ONCE PER DAY
     Route: 048
  203. RISPERDAL [Suspect]
     Active Substance: RISPERIDONE
     Dosage: 1 MG, ONCE PER DAY
     Route: 065
  204. RISPERDAL [Suspect]
     Active Substance: RISPERIDONE
     Dosage: 6 MG, ONCE PER DAY
     Route: 048
  205. RISPERDAL [Suspect]
     Active Substance: RISPERIDONE
     Dosage: 1 MG, ONCE PER DAY
     Route: 065
  206. RISPERDAL [Suspect]
     Active Substance: RISPERIDONE
     Dosage: 1 G, ONCE PER DAY
     Route: 065
  207. RISPERDAL [Suspect]
     Active Substance: RISPERIDONE
     Dosage: 1 MG, ONCE PER DAY
     Route: 065
  208. RISPERDAL [Suspect]
     Active Substance: RISPERIDONE
     Dosage: 4 MG, ONCE PER DAY
     Route: 065
  209. RISPERDAL [Suspect]
     Active Substance: RISPERIDONE
     Dosage: 1 MG, ONCE PER DAY
     Route: 048
  210. RISPERDAL [Suspect]
     Active Substance: RISPERIDONE
     Dosage: 4 MG, ONCE PER DAY
     Route: 065
  211. RISPERDAL [Suspect]
     Active Substance: RISPERIDONE
     Dosage: 3 MG, 2 TIMES PER DAY
     Route: 048
  212. RISPERDAL [Suspect]
     Active Substance: RISPERIDONE
     Dosage: 6 MG, ONCE PER DAY
     Route: 048
  213. RISPERDAL [Suspect]
     Active Substance: RISPERIDONE
     Dosage: 6 MG, ONCE PER DAY
     Route: 048
  214. RISPERDAL [Suspect]
     Active Substance: RISPERIDONE
     Dosage: 2 MG, 2 TIMES PER DAY
     Route: 065
  215. RISPERDAL [Suspect]
     Active Substance: RISPERIDONE
     Dosage: 1 MG, ONCE PER DAY
     Route: 065
  216. RISPERDAL [Suspect]
     Active Substance: RISPERIDONE
     Dosage: 2 MG, 2 TIMES PER DAY
     Route: 065
  217. RISPERDAL [Suspect]
     Active Substance: RISPERIDONE
     Dosage: 6 MG, ONCE PER DAY
     Route: 048
  218. RISPERDAL [Suspect]
     Active Substance: RISPERIDONE
     Dosage: 6 MG, ONCE PER DAY
     Route: 048
  219. RISPERDAL [Suspect]
     Active Substance: RISPERIDONE
     Dosage: 6 MG, ONCE PER DAY
     Route: 048
  220. RISPERDAL [Suspect]
     Active Substance: RISPERIDONE
     Dosage: 6 MG, ONCE PER DAY
     Route: 048
  221. RISPERDAL [Suspect]
     Active Substance: RISPERIDONE
     Dosage: 6 MG, ONCE PER DAY
     Route: 048
  222. RISPERDAL [Suspect]
     Active Substance: RISPERIDONE
     Dosage: 1 G, ONCE PER DAY
     Route: 065
  223. RISPERDAL [Suspect]
     Active Substance: RISPERIDONE
     Dosage: 1 G, ONCE PER DAY
     Route: 065
  224. RISPERDAL [Suspect]
     Active Substance: RISPERIDONE
     Dosage: 4 MG, ONCE PER DAY
     Route: 065
  225. RISPERDAL [Suspect]
     Active Substance: RISPERIDONE
     Dosage: 4 MG, ONCE PER DAY
     Route: 065
  226. RISPERDAL [Suspect]
     Active Substance: RISPERIDONE
     Dosage: 4 MG, ONCE PER DAY
     Route: 065
  227. RISPERDAL [Suspect]
     Active Substance: RISPERIDONE
     Dosage: 4 MG, ONCE PER DAY (2 MG, 2X/DAY)
     Route: 065
  228. RISPERDAL [Suspect]
     Active Substance: RISPERIDONE
     Dosage: 2 MG, 2 TIMES PER DAY
     Route: 065
  229. RISPERDAL [Suspect]
     Active Substance: RISPERIDONE
     Dosage: 2 MG, 2 TIMES PER DAY
     Route: 065
  230. RISPERDAL [Suspect]
     Active Substance: RISPERIDONE
     Dosage: 2 MG, 2 TIMES PER DAY
     Route: 065
  231. RISPERDAL [Suspect]
     Active Substance: RISPERIDONE
     Dosage: 1 MG, ONCE PER DAY
     Route: 065
  232. RISPERDAL [Suspect]
     Active Substance: RISPERIDONE
     Dosage: 2 MG, 2 TIMES PER DAY
     Route: 065
  233. RISPERDAL [Suspect]
     Active Substance: RISPERIDONE
     Dosage: UNK
  234. DOCETAXEL [Suspect]
     Active Substance: DOCETAXEL\DOCETAXEL ANHYDROUS
     Indication: Breast cancer metastatic
     Dosage: 110 MG, 3 TIMES PER WEEK (CUMULATIVE DOSE: 324.98)
     Route: 042
     Dates: start: 20150930, end: 20151021
  235. DOCETAXEL [Suspect]
     Active Substance: DOCETAXEL\DOCETAXEL ANHYDROUS
     Indication: Product used for unknown indication
     Dosage: 110 MG, 3 TIMES PER WEEK
     Route: 042
     Dates: start: 20151111, end: 20151222
  236. DOCETAXEL [Suspect]
     Active Substance: DOCETAXEL\DOCETAXEL ANHYDROUS
     Dosage: UNK,  UNK
     Dates: start: 20151222
  237. DOCETAXEL [Suspect]
     Active Substance: DOCETAXEL\DOCETAXEL ANHYDROUS
     Dosage: 220 MG,  UNK
     Dates: start: 20151222
  238. PACLITAXEL [Suspect]
     Active Substance: PACLITAXEL
     Indication: Breast cancer metastatic
     Dosage: 120 MG, ONCE  PER WEEK (1/W)
     Route: 042
     Dates: start: 20151111
  239. PACLITAXEL [Suspect]
     Active Substance: PACLITAXEL
     Dosage: 150 MG, ONCE PER WEEK (CUMULATIVE DOSE: 428.57 MG
     Route: 042
     Dates: start: 20151111, end: 20151222
  240. PACLITAXEL [Suspect]
     Active Substance: PACLITAXEL
     Dosage: 120 MG, ONCE PER WEEK (CUMULATIVE DOSE: 377.142)
     Route: 042
     Dates: start: 20151223, end: 20151223
  241. PACLITAXEL [Suspect]
     Active Substance: PACLITAXEL
     Dosage: UNK,  UNK
     Route: 065
     Dates: start: 20151111
  242. PACLITAXEL [Suspect]
     Active Substance: PACLITAXEL
     Dosage: UNK,  UNK
     Route: 065
     Dates: start: 20151223, end: 20151223
  243. PACLITAXEL [Suspect]
     Active Substance: PACLITAXEL
     Dosage: UNK,  UNK
     Route: 065
     Dates: start: 20151111, end: 20151222
  244. PERTUZUMAB [Suspect]
     Active Substance: PERTUZUMAB
     Indication: Breast cancer metastatic
     Dosage: 840 MG, 3 TIMES PER DAY
     Route: 042
     Dates: start: 20150930
  245. PERTUZUMAB [Suspect]
     Active Substance: PERTUZUMAB
     Indication: Product used for unknown indication
     Dosage: 420 MG, 3 TIMES PER WEEK (CUMULATIVE DOSE: 23360.8333 MG)
     Route: 042
     Dates: start: 20151021
  246. PERTUZUMAB [Suspect]
     Active Substance: PERTUZUMAB
     Dosage: 2 MICRON, PER WEEK
     Route: 042
  247. PERTUZUMAB [Suspect]
     Active Substance: PERTUZUMAB
     Dosage: UNK,  UNK
     Route: 065
     Dates: start: 20150930
  248. PERTUZUMAB [Suspect]
     Active Substance: PERTUZUMAB
     Dosage: UNK,  UNK
     Route: 065
     Dates: start: 20151021
  249. PERTUZUMAB [Suspect]
     Active Substance: PERTUZUMAB
     Dosage: UNK,  UNK
     Route: 065
  250. PERTUZUMAB [Suspect]
     Active Substance: PERTUZUMAB
     Dosage: 2 IU, ONCE PER DAY (2 INTERNATIONAL UNIT, QWK)
  251. PERTUZUMAB [Suspect]
     Active Substance: PERTUZUMAB
     Dosage: 840 MG, 3 TIMES PER DAY (CUMULATIVE DOSE-47561.6666)
     Route: 042
     Dates: start: 20150930
  252. PERTUZUMAB [Suspect]
     Active Substance: PERTUZUMAB
     Dosage: 2 IU, PER WEEK
  253. TRASTUZUMAB [Suspect]
     Active Substance: TRASTUZUMAB
     Indication: Breast cancer metastatic
     Dosage: 840 MG, 3 TIMES PER WEEK ((CUMULATIVE DOSE: 2481.6667 MG )
     Route: 065
  254. TRASTUZUMAB [Suspect]
     Active Substance: TRASTUZUMAB
     Dosage: 420 MG, 3 TIMES PER WEEK (420 MG, Q3W (CUMULATIVE DOSE: 820.83 MG))
     Route: 065
  255. TRASTUZUMAB [Suspect]
     Active Substance: TRASTUZUMAB
     Dosage: 609 MG,2 TIMES  PER WEEK
     Route: 042
     Dates: start: 20150930
  256. TRASTUZUMAB [Suspect]
     Active Substance: TRASTUZUMAB
     Dosage: 1218 MG, PER WEEK
     Route: 065
     Dates: start: 20150930
  257. TRASTUZUMAB [Suspect]
     Active Substance: TRASTUZUMAB
     Dosage: 609 MG, 3 TIMES PER WEEK (1799.20 MG)
     Route: 042
     Dates: start: 20150930
  258. TRASTUZUMAB [Suspect]
     Active Substance: TRASTUZUMAB
     Dosage: 1218 MG, PER WEEK (609 MG, 2/W)
     Route: 065
     Dates: start: 20151130
  259. TRASTUZUMAB [Suspect]
     Active Substance: TRASTUZUMAB
     Dosage: 1799 MG,  UNK
     Route: 065
     Dates: start: 20150930
  260. TRASTUZUMAB [Suspect]
     Active Substance: TRASTUZUMAB
     Dosage: UNK,  UNK
     Route: 065
     Dates: start: 20150930
  261. TRASTUZUMAB [Suspect]
     Active Substance: TRASTUZUMAB
     Dosage: 420 MG,  UNK (420 MG, Q3W (CUMULATIVE DOSE: 820.83 MG))
  262. ZUCLOPENTHIXOL [Suspect]
     Active Substance: ZUCLOPENTHIXOL
     Indication: Product used for unknown indication
     Dosage: 400 MG, CYCLICAL, (400 MG, CYCLIC (400 MG, BIWEEKLY)
     Route: 048
     Dates: start: 20040217, end: 20040601
  263. ZUCLOPENTHIXOL [Suspect]
     Active Substance: ZUCLOPENTHIXOL
     Dosage: 300 MG, PER WEEK
     Route: 048
     Dates: start: 20091018
  264. ZUCLOPENTHIXOL [Suspect]
     Active Substance: ZUCLOPENTHIXOL
     Dosage: 300 MG, PER WEEK
     Route: 065
     Dates: start: 20091009
  265. ZUCLOPENTHIXOL [Suspect]
     Active Substance: ZUCLOPENTHIXOL
     Dosage: UNK,  UNK
     Route: 065
  266. ZUCLOPENTHIXOL [Suspect]
     Active Substance: ZUCLOPENTHIXOL
     Dosage: 300 MG, PER WEEK
     Route: 065
     Dates: start: 20091018
  267. ZUCLOPENTHIXOL [Suspect]
     Active Substance: ZUCLOPENTHIXOL
     Dosage: 400 MG PER WEEK
     Route: 065
     Dates: start: 20040217, end: 20040601
  268. ZUCLOPENTHIXOL [Suspect]
     Active Substance: ZUCLOPENTHIXOL
     Dosage: 400 MG,  (CYCLIC BIWEEKLY)
     Route: 065
     Dates: start: 20030204, end: 20040217
  269. ZUCLOPENTHIXOL [Suspect]
     Active Substance: ZUCLOPENTHIXOL
     Dosage: 400 MG,  (CYCLIC BIWEEKLY)
     Route: 065
     Dates: start: 20040601, end: 20041018
  270. ZUCLOPENTHIXOL [Suspect]
     Active Substance: ZUCLOPENTHIXOL
     Dosage: 400 MG,  (OTHER BIWEEKLY)
     Route: 065
     Dates: start: 20041018, end: 20041018
  271. ZUCLOPENTHIXOL [Suspect]
     Active Substance: ZUCLOPENTHIXOL
     Dosage: 300 MG, PER WEEK
  272. ZUCLOPENTHIXOL [Suspect]
     Active Substance: ZUCLOPENTHIXOL
     Dosage: 400 MG, BIWEEKLY
     Route: 030
     Dates: start: 20091018
  273. ZUCLOPENTHIXOL [Suspect]
     Active Substance: ZUCLOPENTHIXOL
     Dosage: 400 MG, PER WEEK
     Route: 065
     Dates: start: 20091018
  274. ZUCLOPENTHIXOL [Suspect]
     Active Substance: ZUCLOPENTHIXOL
     Dosage: 400 MG, PER WEEK
     Route: 065
     Dates: start: 20040601
  275. ZUCLOPENTHIXOL [Suspect]
     Active Substance: ZUCLOPENTHIXOL
     Dosage: 400, BIWEEKLY
     Route: 065
     Dates: end: 20041018
  276. CALCIUM\CHOLECALCIFEROL [Concomitant]
     Active Substance: CALCIUM\CHOLECALCIFEROL
     Indication: Product used for unknown indication
     Dosage: 2 DOSAGE FORM, ONCE PER DAY
     Route: 048
     Dates: start: 20091018
  277. CALCIUM\CHOLECALCIFEROL [Concomitant]
     Active Substance: CALCIUM\CHOLECALCIFEROL
     Dosage: UNK, ONCE PER DAY (2 10.A)
     Route: 065
  278. CALCIUM\CHOLECALCIFEROL [Concomitant]
     Active Substance: CALCIUM\CHOLECALCIFEROL
     Dosage: UNK,  UNK
     Dates: start: 20091018
  279. CHLORPHENIRAMINE MALEATE [Concomitant]
     Active Substance: CHLORPHENIRAMINE MALEATE
     Indication: Product used for unknown indication
     Dosage: 10 MG, PER WEEK
     Route: 058
     Dates: start: 20151111
  280. AMOXICILLIN\CLAVULANATE POTASSIUM [Concomitant]
     Active Substance: AMOXICILLIN\CLAVULANATE POTASSIUM
     Indication: Product used for unknown indication
     Dosage: 2500 MG, 4 TIMES PER DAY
     Dates: start: 20151122
  281. AMOXICILLIN\CLAVULANATE POTASSIUM [Concomitant]
     Active Substance: AMOXICILLIN\CLAVULANATE POTASSIUM
     Indication: Febrile neutropenia
     Dosage: 625 MG,  (EVERY 0.33 DAYS, CUMULATIVE DOSE: 16875)
     Dates: start: 20151122, end: 20151125
  282. AMOXICILLIN\CLAVULANATE POTASSIUM [Concomitant]
     Active Substance: AMOXICILLIN\CLAVULANATE POTASSIUM
     Dosage: 2500 MG, ONCE PER DAY (625 MG, QID )
     Dates: start: 20151122, end: 20151125
  283. AMOXICILLIN\CLAVULANATE POTASSIUM [Concomitant]
     Active Substance: AMOXICILLIN\CLAVULANATE POTASSIUM
     Dosage: 2500 MG, ONCE PER DAY (625 MG, QID )
     Dates: start: 20151122
  284. AMOXICILLIN\CLAVULANATE POTASSIUM [Concomitant]
     Active Substance: AMOXICILLIN\CLAVULANATE POTASSIUM
     Dosage: 625 MG,  (120 MG, OTHER (EVERY 9 WEEKS) )
     Dates: start: 20151111
  285. AMOXICILLIN\CLAVULANATE POTASSIUM [Concomitant]
     Active Substance: AMOXICILLIN\CLAVULANATE POTASSIUM
     Dosage: 2500 UNK, ONCE PER DAY
     Dates: start: 20151111
  286. CHOLECALCIFEROL [Concomitant]
     Active Substance: CHOLECALCIFEROL
     Indication: Product used for unknown indication
     Dosage: 2 DOSAGE FORM, ONCE PER DAY
     Route: 048
  287. DENOSUMAB [Concomitant]
     Active Substance: DENOSUMAB
     Indication: Product used for unknown indication
     Dosage: 120 MG, OTHER (EVERY 9 WEEKS)
     Dates: start: 20150930
  288. DENOSUMAB [Concomitant]
     Active Substance: DENOSUMAB
     Indication: Gastrooesophageal reflux disease
     Dosage: 120 MG, OTHER (EVERY 9 WEEKS)
  289. DENOSUMAB [Concomitant]
     Active Substance: DENOSUMAB
     Indication: Metastases to bone
     Dosage: 120 MG, OTHER (625 MG, QID)
     Dates: start: 20150930
  290. DENOSUMAB [Concomitant]
     Active Substance: DENOSUMAB
     Dosage: 120 MG, ONCE PER DAY  (625 MG, QID )
     Dates: start: 20150930
  291. DULOXETINE [Concomitant]
     Active Substance: DULOXETINE
     Indication: Product used for unknown indication
     Dosage: UNK,  UNK
     Route: 065
  292. GENTAMICIN [Concomitant]
     Active Substance: GENTAMICIN
     Indication: Product used for unknown indication
     Dosage: UNK,  UNK
     Dates: start: 20151121, end: 201511
  293. GENTAMICIN [Concomitant]
     Active Substance: GENTAMICIN
     Indication: Febrile neutropenia
  294. LEVOFLOXACIN [Concomitant]
     Active Substance: LEVOFLOXACIN
     Indication: Product used for unknown indication
     Dosage: 500 MG, ONCE PER DAY
     Dates: start: 20151125
  295. LEVOFLOXACIN [Concomitant]
     Active Substance: LEVOFLOXACIN
     Indication: Febrile neutropenia
  296. MIRTAZAPINE [Concomitant]
     Active Substance: MIRTAZAPINE
     Indication: Product used for unknown indication
     Dosage: 15 MG, ONCE PER DAY
     Route: 048
     Dates: start: 201510
  297. MORPHINE [Concomitant]
     Active Substance: MORPHINE
     Indication: Product used for unknown indication
     Dosage: 30 MG, EVERY 0.5 DAY
     Dates: start: 201509
  298. MORPHINE [Concomitant]
     Active Substance: MORPHINE
     Indication: Pain
     Dosage: 60 MG,  ONCE PER DAY (30 MG, BID)
     Dates: start: 201509
  299. MORPHINE [Concomitant]
     Active Substance: MORPHINE
     Dosage: 60 MG, UNK  (60 MG, QD (30 MG, BID) )
     Dates: start: 201509
  300. MORPHINE [Concomitant]
     Active Substance: MORPHINE
     Dosage: 15 MG,  ONCE PER DAY
     Route: 048
     Dates: start: 201510
  301. ORAMORPH SR SUSTAINED RELEASE [Concomitant]
     Active Substance: MORPHINE SULFATE
     Indication: Product used for unknown indication
     Dosage: 10 MG,  UNK
     Route: 065
     Dates: start: 201509
  302. ORAMORPH SR SUSTAINED RELEASE [Concomitant]
     Active Substance: MORPHINE SULFATE
     Dosage: 15 MG, ONCE PER DAY
     Dates: start: 201510
  303. ORAMORPH SR SUSTAINED RELEASE [Concomitant]
     Active Substance: MORPHINE SULFATE
     Dosage: 60 MG (60 MG, QD (30 MG, BID) )
     Dates: start: 201509
  304. ORAMORPH SR SUSTAINED RELEASE [Concomitant]
     Active Substance: MORPHINE SULFATE
     Dosage: 30 MG, (EVERY 0.5 DAY)
     Dates: start: 201509
  305. ORAMORPH SR SUSTAINED RELEASE [Concomitant]
     Active Substance: MORPHINE SULFATE
     Dosage: 60 MG, ONCE PER DAY (30 MG, BID )
     Dates: start: 201509
  306. ACETAMINOPHEN [Concomitant]
     Active Substance: ACETAMINOPHEN
     Indication: Product used for unknown indication
     Dosage: 500 MG,  UNK
     Dates: start: 20151027
  307. ACETAMINOPHEN [Concomitant]
     Active Substance: ACETAMINOPHEN
     Indication: Pain
     Dosage: 15 MG, ONCE PER DAY
     Dates: start: 201510
  308. PREGABALIN [Concomitant]
     Active Substance: PREGABALIN
     Indication: Product used for unknown indication
     Dosage: 150 MG, ONCE PER DAY (75 MG, BID)
     Dates: start: 201509
  309. PREGABALIN [Concomitant]
     Active Substance: PREGABALIN
     Dosage: 75 MG, EVERY 0.5 DAY
     Route: 048
     Dates: start: 201509
  310. PREGABALIN [Concomitant]
     Active Substance: PREGABALIN
     Dosage: 150 MG, ONCE PER DAY
  311. PREGABALIN [Concomitant]
     Active Substance: PREGABALIN
     Dosage: 150 MG, 2 TIMES PER DAY
     Route: 065
     Dates: start: 201509
  312. PREGABALIN [Concomitant]
     Active Substance: PREGABALIN
     Dosage: 75 MG, 2 TIMES PER DAY, BID
     Route: 048
     Dates: start: 201509
  313. RANITIDINE [Concomitant]
     Active Substance: RANITIDINE
     Indication: Product used for unknown indication
     Dosage: 50 MG, PER WEEK (CUMULATIVE DOSE: 142.857)
     Route: 065
     Dates: start: 20151111
  314. RANITIDINE [Concomitant]
     Active Substance: RANITIDINE
     Indication: Gastrooesophageal reflux disease
     Dosage: 50 MG, PER WEEK (1/W)
     Route: 058
  315. RANITIDINE [Concomitant]
     Active Substance: RANITIDINE
     Dosage: 75 MG UNK (50 MILLIGRAM, QWK )
     Route: 065
     Dates: start: 20151111
  316. RANITIDINE [Concomitant]
     Active Substance: RANITIDINE
     Dosage: 150MG, ONCE PER WEEK (50 MILLIGRAM, QWK )
     Route: 065
  317. RANITIDINE [Concomitant]
     Active Substance: RANITIDINE
     Dosage: 75 MG, PER WEEK
     Dates: start: 20151111
  318. PIPERACILLIN SODIUM\TAZOBACTAM SODIUM [Concomitant]
     Active Substance: PIPERACILLIN SODIUM\TAZOBACTAM SODIUM
     Indication: Product used for unknown indication
     Dosage: UNK,  UNK
     Route: 065
     Dates: start: 20151121, end: 201511
  319. PIPERACILLIN SODIUM\TAZOBACTAM SODIUM [Concomitant]
     Active Substance: PIPERACILLIN SODIUM\TAZOBACTAM SODIUM
     Indication: Febrile neutropenia
     Dosage: UNK,  UNK
     Dates: start: 20151121
  320. TAZOBACTAM SODIUM [Concomitant]
     Active Substance: TAZOBACTAM SODIUM
     Indication: Product used for unknown indication
     Dosage: UNK,  UNK
     Route: 065
     Dates: start: 20151121
  321. TAZOBACTAM SODIUM [Concomitant]
     Active Substance: TAZOBACTAM SODIUM
     Indication: Febrile neutropenia
  322. XGEVA [Suspect]
     Active Substance: DENOSUMAB
     Indication: Gastrooesophageal reflux disease
     Dosage: 120 MG, ONCE PER DAY
     Route: 065
     Dates: start: 20150930
  323. XGEVA [Suspect]
     Active Substance: DENOSUMAB
     Indication: Metastases to bone
     Dosage: 120 UNK, (OTHER (EVERY 9 WEEKS))
     Route: 065
     Dates: start: 20150930

REACTIONS (40)
  - Neutropenia [Fatal]
  - Psychotic disorder [Fatal]
  - Extrapyramidal disorder [Fatal]
  - Affective disorder [Fatal]
  - Fatigue [Fatal]
  - Schizophrenia [Fatal]
  - Delusion of grandeur [Fatal]
  - Hallucination, auditory [Fatal]
  - Leukopenia [Fatal]
  - Platelet count decreased [Fatal]
  - Hospitalisation [Unknown]
  - Lymphocyte count decreased [Fatal]
  - Off label use [Fatal]
  - Neutrophil count increased [Fatal]
  - Off label use [Fatal]
  - Incorrect dose administered [Fatal]
  - Alopecia [Fatal]
  - SARS-CoV-2 test positive [Fatal]
  - Cellulitis [Fatal]
  - Diarrhoea [Fatal]
  - Disease progression [Fatal]
  - Dyspepsia [Fatal]
  - Mucosal inflammation [Fatal]
  - Nausea [Fatal]
  - Neuropathy peripheral [Fatal]
  - Seizure [Fatal]
  - Rhinalgia [Fatal]
  - Fatigue [Fatal]
  - Overdose [Fatal]
  - Lymphocyte count decreased [Fatal]
  - COVID-19 [Fatal]
  - Fatigue [Fatal]
  - Neoplasm progression [Fatal]
  - Off label use [Fatal]
  - Extrapyramidal disorder [Fatal]
  - Schizophrenia [Fatal]
  - Intentional product misuse [Fatal]
  - Thrombocytopenia [Recovering/Resolving]
  - Affective disorder [Fatal]
  - Leukocytosis [Unknown]

NARRATIVE: CASE EVENT DATE: 20150201
